FAERS Safety Report 15570619 (Version 1)
Quarter: 2018Q4

REPORT INFORMATION
  Report Type: Spontaneous
  Country: ZA (occurrence: ZA)
  Receive Date: 20181031
  Receipt Date: 20181031
  Transmission Date: 20190205
  Serious: Yes (Life-Threatening, Hospitalization)
  Sender: FDA-Public Use
  Company Number: ZA-PFIZER INC-2018445005

PATIENT
  Age: 54 Year
  Sex: Female
  Weight: 48.98 kg

DRUGS (12)
  1. BEDAQUILINE [Suspect]
     Active Substance: BEDAQUILINE
     Dosage: 200 MG, THRICE WEEKLY (TIW)
     Route: 048
     Dates: start: 20180824
  2. RITONAVIR. [Concomitant]
     Active Substance: RITONAVIR
     Indication: PSYCHOTHERAPY
     Dosage: UNK
     Dates: start: 201809
  3. CLOFAZIMINE [Suspect]
     Active Substance: CLOFAZIMINE
     Indication: TUBERCULOSIS
     Dosage: 100 MG, 1X/DAY
     Dates: start: 20180824
  4. TENOFOVIR [Concomitant]
     Active Substance: TENOFOVIR
     Indication: PSYCHOTHERAPY
     Dosage: UNK
     Dates: start: 201809
  5. BEDAQUILINE [Suspect]
     Active Substance: BEDAQUILINE
     Indication: TUBERCULOSIS
     Dosage: 400 MG, 1X/DAY
     Route: 048
     Dates: start: 20180824
  6. PAS [Suspect]
     Active Substance: AMINOSALICYLIC ACID
     Indication: TUBERCULOSIS
     Dosage: 8 G, 1X/DAY (NOCTE)
     Dates: start: 20180824
  7. EMTRICITABINE [Concomitant]
     Active Substance: EMTRICITABINE
     Indication: PSYCHOTHERAPY
     Dosage: UNK
     Dates: start: 201809
  8. TERIZIDONE [Suspect]
     Active Substance: TERIZIDONE
     Indication: TUBERCULOSIS
     Dosage: 750 MG, 1X/DAY
     Dates: start: 20180824
  9. LINEZOLID. [Suspect]
     Active Substance: LINEZOLID
     Indication: TUBERCULOSIS
     Dosage: 600 MG, 1X/DAY
     Dates: start: 20180824
  10. ATAZANAVIR. [Concomitant]
     Active Substance: ATAZANAVIR SULFATE
     Indication: ANTIRETROVIRAL THERAPY
     Dosage: UNK
     Dates: start: 201809
  11. DELAMANID [Suspect]
     Active Substance: DELAMANID
     Indication: TUBERCULOSIS
     Dosage: 100 MG, 2X/DAY
     Route: 048
     Dates: start: 20180904
  12. Z (PYRAZINAMIDE) [Suspect]
     Active Substance: PYRAZINAMIDE
     Indication: TUBERCULOSIS
     Dosage: UNK

REACTIONS (3)
  - Arthralgia [Unknown]
  - Meningitis bacterial [Recovered/Resolved]
  - Product use in unapproved indication [Unknown]

NARRATIVE: CASE EVENT DATE: 20180908
